FAERS Safety Report 5740859-9 (Version None)
Quarter: 2008Q2

REPORT INFORMATION
  Report Type: 
  Country: None (occurrence: None)
  Receive Date: 20080516
  Receipt Date: 20080512
  Transmission Date: 20081010
  Serious: Yes (Life-Threatening)
  Sender: FDA-Public Use
  Company Number: CA-BOEHRINGER INGELHEIM GMBH, GERMANY-2008-BP-07519RO

PATIENT
  Age: 64 Year
  Sex: Male

DRUGS (9)
  1. LIDOCAINE [Suspect]
     Indication: EPIDURAL ANAESTHESIA
     Route: 008
  2. BUPIVACAINE [Suspect]
     Indication: EPIDURAL ANAESTHESIA
     Route: 008
  3. PROPOFOL [Suspect]
     Indication: GENERAL ANAESTHESIA
  4. FENTANYL CITRATE [Suspect]
     Indication: GENERAL ANAESTHESIA
  5. ISOFLURANE [Suspect]
     Indication: GENERAL ANAESTHESIA
  6. OXYGEN [Suspect]
     Indication: GENERAL ANAESTHESIA
  7. NITROUS OXIDE [Suspect]
     Indication: GENERAL ANAESTHESIA
  8. ATROPINE [Concomitant]
     Indication: CARDIAC ARREST
     Route: 042
  9. SODIUM CHLORIDE [Concomitant]
     Indication: CARDIAC ARREST

REACTIONS (1)
  - CARDIAC ARREST [None]
